FAERS Safety Report 10163947 (Version 1)
Quarter: 2014Q2

REPORT INFORMATION
  Report Type: Spontaneous
  Country: US (occurrence: US)
  Receive Date: 20140510
  Receipt Date: 20140510
  Transmission Date: 20141212
  Serious: No
  Sender: FDA-Public Use
  Company Number: US-BRISTOL-MYERS SQUIBB COMPANY-19686260

PATIENT
  Age: 43 Year
  Sex: Female
  Weight: 112.47 kg

DRUGS (2)
  1. BYETTA [Suspect]
     Route: 058
  2. METFORMIN [Concomitant]
     Dosage: 1000(UNITS NOS).

REACTIONS (4)
  - Nausea [Unknown]
  - Weight decreased [Unknown]
  - Dizziness [Unknown]
  - Decreased appetite [Unknown]
